FAERS Safety Report 11406846 (Version 1)
Quarter: 2015Q3

REPORT INFORMATION
  Report Type: Spontaneous
  Country: US (occurrence: US)
  Receive Date: 20150821
  Receipt Date: 20150821
  Transmission Date: 20151125
  Serious: No
  Sender: FDA-Public Use
  Company Number: US-CELGENEUS-USA-2015082268

PATIENT
  Sex: Male

DRUGS (2)
  1. REVLIMID [Suspect]
     Active Substance: LENALIDOMIDE
     Indication: LYMPHOMA
     Route: 048
     Dates: start: 201505
  2. REVLIMID [Suspect]
     Active Substance: LENALIDOMIDE
     Route: 048
     Dates: start: 201508

REACTIONS (6)
  - Lymphoma [Unknown]
  - Blood count abnormal [Unknown]
  - Parkinson^s disease [Unknown]
  - Vision blurred [Unknown]
  - Glaucoma [Unknown]
  - Fatigue [Unknown]

NARRATIVE: CASE EVENT DATE: 2015
